FAERS Safety Report 23601396 (Version 4)
Quarter: 2024Q2

REPORT INFORMATION
  Report Type: Spontaneous
  Country: US (occurrence: US)
  Receive Date: 20240306
  Receipt Date: 20240619
  Transmission Date: 20240716
  Serious: Yes (Hospitalization, Other)
  Sender: FDA-Public Use
  Company Number: US-ORGANON-O2403USA000189

PATIENT
  Age: 66 Year
  Sex: Female

DRUGS (1)
  1. ASMANEX [Suspect]
     Active Substance: MOMETASONE FUROATE
     Indication: Asthma
     Dosage: 220 MCG 30 DOSE, ONCE DAILY

REACTIONS (8)
  - Pneumonia [Recovered/Resolved]
  - Pneumonia [Recovered/Resolved]
  - Hypersensitivity [Not Recovered/Not Resolved]
  - Muscular weakness [Not Recovered/Not Resolved]
  - Device malfunction [Unknown]
  - Poor quality device used [Unknown]
  - Product availability issue [Unknown]
  - Drug dose omission by device [Unknown]

NARRATIVE: CASE EVENT DATE: 20211001
